FAERS Safety Report 6649563-6 (Version None)
Quarter: 2010Q1

REPORT INFORMATION
  Report Type: 
  Country: None (occurrence: None)
  Receive Date: 20100324
  Receipt Date: 20100324
  Transmission Date: 20100710
  Serious: No
  Sender: FDA-Public Use
  Company Number: None

PATIENT
  Age: 38 Year
  Sex: Male
  Weight: 74.8435 kg

DRUGS (2)
  1. CIPROFLOXACIN HCL [Suspect]
     Indication: BACTERIAL INFECTION
     Dosage: 1 TABLET TWICE DAILY PO
     Route: 048
     Dates: start: 20100221, end: 20100307
  2. CIPROFLOXACIN HCL [Suspect]
     Indication: PNEUMONIA
     Dosage: 1 TABLET TWICE DAILY PO
     Route: 048
     Dates: start: 20100221, end: 20100307

REACTIONS (5)
  - GAIT DISTURBANCE [None]
  - INFLAMMATION [None]
  - LIGAMENT DISORDER [None]
  - LIGAMENT RUPTURE [None]
  - PAIN [None]
